FAERS Safety Report 19888520 (Version 1)
Quarter: 2021Q3

REPORT INFORMATION
  Report Type: Spontaneous
  Country: US (occurrence: US)
  Receive Date: 20210927
  Receipt Date: 20210927
  Transmission Date: 20211014
  Serious: No
  Sender: FDA-Public Use
  Company Number: US-KVK-TECH, INC-20210200022

PATIENT
  Age: 58 Year
  Sex: Female
  Weight: 56.69 kg

DRUGS (6)
  1. BACLOFEN. [Concomitant]
     Active Substance: BACLOFEN
     Indication: SEIZURE
     Dosage: 10 MILLIGRAM
  2. NAPROXEN. [Concomitant]
     Active Substance: NAPROXEN
  3. LEXAPRO [Concomitant]
     Active Substance: ESCITALOPRAM OXALATE
     Indication: ANXIETY
  4. LAMOTRIGINE. [Concomitant]
     Active Substance: LAMOTRIGINE
     Indication: SEIZURE
  5. LYRICA [Concomitant]
     Active Substance: PREGABALIN
     Indication: INTERVERTEBRAL DISC DEGENERATION
  6. OXYCODONE HYDROCHLORIDE TABLETS, USP [Suspect]
     Active Substance: OXYCODONE HYDROCHLORIDE
     Dosage: THREE OXYCODONE 10 MG TABLETS I.E. EVERY 8 HOURS, TID
     Route: 048
     Dates: start: 20210102

REACTIONS (4)
  - Drug screen negative [Recovered/Resolved]
  - Tooth disorder [Unknown]
  - Drug ineffective [Recovered/Resolved]
  - Jaw disorder [Unknown]

NARRATIVE: CASE EVENT DATE: 20210102
